FAERS Safety Report 8574940-6 (Version None)
Quarter: 2012Q3

REPORT INFORMATION
  Report Type: 
  Country: None (occurrence: None)
  Receive Date: 20120807
  Receipt Date: 20120726
  Transmission Date: 20120928
  Serious: Yes (Hospitalization)
  Sender: FDA-Public Use
  Company Number: US-BAYER-2012-031214

PATIENT
  Age: 15 Year
  Sex: Female
  Weight: 70 kg

DRUGS (9)
  1. FLOVENT [Concomitant]
     Indication: ASTHMA
     Dosage: 250 MCG/24HR, BID,60 DISPENSED FOR 30 DAY SUPPLY
  2. ANTIBIOTICS [Concomitant]
     Indication: ACNE
     Dosage: UNK
     Dates: start: 20100801
  3. VENTOLIN [Concomitant]
     Indication: ASTHMA
  4. ALBUTEROL [Concomitant]
     Indication: ASTHMA
     Dosage: UNK UNK, PRN
  5. YASMIN [Suspect]
     Indication: ACNE
     Dosage: UNK
     Route: 048
     Dates: start: 20100818, end: 20110202
  6. AZITHROMYCIN [Concomitant]
     Dosage: 250 UNK, UNK,6 DISPENSED
  7. ADVIL [Concomitant]
  8. DUAC [Concomitant]
     Dosage: UNK
  9. DIFFERIN [Concomitant]
     Dosage: 3 %,45 DISPENSED

REACTIONS (6)
  - OEDEMA PERIPHERAL [None]
  - PAIN IN EXTREMITY [None]
  - ANXIETY [None]
  - ANHEDONIA [None]
  - DEEP VEIN THROMBOSIS [None]
  - INJURY [None]
